FAERS Safety Report 9356165 (Version 1)
Quarter: 2013Q2

REPORT INFORMATION
  Report Type: Report from Study
  Country: US (occurrence: US)
  Receive Date: 20130619
  Receipt Date: 20130619
  Transmission Date: 20140414
  Serious: Yes (Hospitalization)
  Sender: FDA-Public Use
  Company Number: US-GLAXOSMITHKLINE-A1027534A

PATIENT
  Age: 55 Year
  Sex: Female
  Weight: 43.8 kg

DRUGS (16)
  1. MELPHALAN [Suspect]
     Indication: AMYLOIDOSIS
     Dosage: 200MGM2 SINGLE DOSE
     Route: 042
     Dates: start: 20130523, end: 20130523
  2. BORTEZOMIB [Suspect]
     Indication: AMYLOIDOSIS
     Dosage: 1.3MGM2 CYCLIC
     Route: 042
     Dates: start: 20130313, end: 20130527
  3. DEXAMETHASONE [Suspect]
     Indication: AMYLOIDOSIS
     Dosage: 20MG CYCLIC
     Dates: start: 20130313, end: 20130527
  4. METOPROLOL SUCCINATE [Concomitant]
  5. SPIRONOLACTONE [Concomitant]
  6. FUROSEMIDE [Concomitant]
  7. MIDODRINE HYDROCHLORIDE [Concomitant]
  8. PANTOPRAZOLE [Concomitant]
  9. LORAZEPAM [Concomitant]
  10. ACYCLOVIR [Concomitant]
  11. LEVAQUIN [Concomitant]
  12. DIFLUCAN [Concomitant]
  13. GRANISETRON HYDROCHLORIDE [Concomitant]
  14. DEXAMETHASONE [Concomitant]
  15. SODIUM FLUORIDE [Concomitant]
  16. PROCHLORPERAZINE MALEATE [Concomitant]

REACTIONS (2)
  - Syncope [Not Recovered/Not Resolved]
  - Diarrhoea [Not Recovered/Not Resolved]
